FAERS Safety Report 12871521 (Version 3)
Quarter: 2017Q2

REPORT INFORMATION
  Report Type: Report from Study
  Country: DE (occurrence: DE)
  Receive Date: 20161020
  Receipt Date: 20170607
  Transmission Date: 20170830
  Serious: Yes (Hospitalization)
  Sender: FDA-Public Use
  Company Number: DE-BIOGEN-2016BI00305943

PATIENT
  Age: 47 Year
  Sex: Female
  Weight: 82 kg

DRUGS (1)
  1. PLEGRIDY [Suspect]
     Active Substance: PEGINTERFERON BETA-1A
     Indication: MULTIPLE SCLEROSIS
     Route: 058
     Dates: start: 20160415, end: 201702

REACTIONS (4)
  - Abdominal wound dehiscence [Recovered/Resolved]
  - Suicidal ideation [Recovered/Resolved]
  - Postoperative wound infection [Recovered/Resolved with Sequelae]
  - Mental disorder [Recovered/Resolved]

NARRATIVE: CASE EVENT DATE: 2016
